FAERS Safety Report 6190151-6 (Version None)
Quarter: 2009Q2

REPORT INFORMATION
  Report Type: 
  Country: None (occurrence: None)
  Receive Date: 20090514
  Receipt Date: 20090506
  Transmission Date: 20091009
  Serious: Yes (Death, Other)
  Sender: FDA-Public Use
  Company Number: CO-ELI_LILLY_AND_COMPANY-CO200905001717

PATIENT
  Age: 75 Year
  Sex: Female

DRUGS (11)
  1. FORTEO [Suspect]
     Indication: OSTEOPOROSIS
     Dosage: 20 UG, UNK
     Route: 058
     Dates: start: 20080325, end: 20090426
  2. CALTRATE [Concomitant]
     Dosage: UNK, DAILY (1/D)
     Route: 065
  3. VITAMIN E [Concomitant]
     Dosage: UNK, DAILY (1/D)
     Route: 065
  4. GLUCOSAMINE [Concomitant]
     Dosage: UNK, DAILY (1/D)
     Route: 065
  5. OMEPRAZOL [Concomitant]
     Dosage: UNK, DAILY (1/D)
     Route: 065
  6. VERAPAMIL [Concomitant]
     Dosage: UNK, DAILY (1/D)
     Route: 065
  7. LOSARTAN POTASSIUM [Concomitant]
     Dosage: UNK, DAILY (1/D)
     Route: 065
  8. NIMODIPINE [Concomitant]
     Dosage: UNK, DAILY (1/D)
     Route: 065
  9. ACETYLSALICYLIC ACID [Concomitant]
     Dosage: 100 MG, DAILY (1/D)
     Route: 065
  10. LOVASTATIN [Concomitant]
     Dosage: UNK, DAILY (1/D)
     Route: 065
  11. CELECOXIB [Concomitant]
     Indication: PAIN
     Dosage: UNK, UNKNOWN
     Route: 065

REACTIONS (2)
  - LUNG DISORDER [None]
  - RESPIRATORY DISORDER [None]
